FAERS Safety Report 19075066 (Version 1)
Quarter: 2021Q1

REPORT INFORMATION
  Report Type: Spontaneous
  Country: US (occurrence: US)
  Receive Date: 20210330
  Receipt Date: 20210330
  Transmission Date: 20210420
  Serious: No
  Sender: FDA-Public Use
  Company Number: US-ROCHE-2717450

PATIENT
  Sex: Male
  Weight: 71.28 kg

DRUGS (3)
  1. ERIVEDGE [Suspect]
     Active Substance: VISMODEGIB
     Indication: BASAL CELL CARCINOMA
  2. ERIVEDGE [Suspect]
     Active Substance: VISMODEGIB
     Indication: BASAL CELL CARCINOMA
     Route: 048
  3. ERIVEDGE [Suspect]
     Active Substance: VISMODEGIB
     Indication: BASAL CELL CARCINOMA
     Dosage: 150 MG TWICE A WEEK ;ONGOING: YES
     Route: 048
     Dates: start: 20161024, end: 20201101

REACTIONS (3)
  - Muscle spasms [Recovered/Resolved]
  - Weight decreased [Not Recovered/Not Resolved]
  - Drug intolerance [Unknown]
